FAERS Safety Report 22632845 (Version 8)
Quarter: 2023Q4

REPORT INFORMATION
  Report Type: Report from Study
  Country: CN (occurrence: CN)
  Receive Date: 20230623
  Receipt Date: 20231019
  Transmission Date: 20240109
  Serious: Yes (Hospitalization)
  Sender: FDA-Public Use
  Company Number: CN-002147023-NVSC2023CN140008

PATIENT
  Age: 65 Year
  Sex: Female
  Weight: 65.5 kg

DRUGS (7)
  1. TABRECTA [Suspect]
     Active Substance: CAPMATINIB
     Indication: Non-small cell lung cancer
     Dosage: 800 MG (400 MG BID), Q24H
     Route: 048
     Dates: start: 20230519, end: 20230619
  2. TABRECTA [Suspect]
     Active Substance: CAPMATINIB
     Dosage: REDUCED DOSE OF 600 MG, Q24H
     Route: 048
     Dates: start: 20230630, end: 20230630
  3. TABRECTA [Suspect]
     Active Substance: CAPMATINIB
     Dosage: UNK
     Route: 048
     Dates: start: 20230717
  4. LEUCOGEN [Concomitant]
     Active Substance: LEUCOGEN
     Indication: Platelet count decreased
     Dosage: UNK
     Route: 065
     Dates: start: 20230602
  5. LORATADINE [Concomitant]
     Active Substance: LORATADINE
     Indication: Erythema multiforme
     Dosage: UNK
     Route: 065
     Dates: start: 20230615, end: 20230615
  6. ACETAMINOPHEN [Concomitant]
     Active Substance: ACETAMINOPHEN
     Indication: Pyrexia
     Dosage: SUSTAINED RELEASE
     Route: 065
     Dates: start: 20230616, end: 20230616
  7. PREDNISONE ACETATE [Concomitant]
     Active Substance: PREDNISONE ACETATE
     Indication: Erythema multiforme
     Dosage: UNK
     Route: 065
     Dates: start: 20230615, end: 20230615

REACTIONS (1)
  - Erythema multiforme [Recovering/Resolving]

NARRATIVE: CASE EVENT DATE: 20230619
